FAERS Safety Report 18003521 (Version 1)
Quarter: 2020Q3

REPORT INFORMATION
  Report Type: Report from Study
  Country: JP (occurrence: JP)
  Receive Date: 20200710
  Receipt Date: 20200710
  Transmission Date: 20201103
  Serious: Yes (Other)
  Sender: FDA-Public Use
  Company Number: JP-CELLTRION INC.-2020JP023987

PATIENT

DRUGS (3)
  1. CT?P13 [Suspect]
     Active Substance: INFLIXIMAB-DYYB
     Indication: COLITIS ULCERATIVE
     Dosage: 315 MG
     Route: 041
     Dates: start: 20181127, end: 20181127
  2. CT?P13 [Suspect]
     Active Substance: INFLIXIMAB-DYYB
     Dosage: 320 MG
     Route: 041
     Dates: start: 20191218, end: 20191218
  3. MESALAZINE [Concomitant]
     Active Substance: MESALAMINE
     Dosage: 3200 MILLIGRAM/DAY
     Route: 048

REACTIONS (6)
  - Upper respiratory tract infection [Recovered/Resolved]
  - Hyperkalaemia [Unknown]
  - Overdose [Unknown]
  - Carotid artery occlusion [Unknown]
  - Cerebral infarction [Unknown]
  - Cerebrovascular stenosis [Unknown]

NARRATIVE: CASE EVENT DATE: 20190512
